FAERS Safety Report 12932555 (Version 3)
Quarter: 2019Q4

REPORT INFORMATION
  Report Type: Spontaneous
  Country: IL (occurrence: IL)
  Receive Date: 20161111
  Receipt Date: 20191127
  Transmission Date: 20200122
  Serious: Yes (Hospitalization, Congenital Anomaly, Other)
  Sender: FDA-Public Use
  Company Number: IL-TEVA-711328ISR

PATIENT
  Age: 2 Day
  Sex: Male

DRUGS (1)
  1. AZITHROMYCIN ANHYDROUS. [Suspect]
     Active Substance: AZITHROMYCIN ANHYDROUS
     Indication: UPPER RESPIRATORY TRACT INFECTION
     Dosage: 500 MILLIGRAM DAILY; FOR 3 DAYS
     Route: 064

REACTIONS (4)
  - Respiratory distress [Unknown]
  - Escherichia infection [Unknown]
  - Pyloric stenosis [Unknown]
  - Foetal exposure during pregnancy [Unknown]
